FAERS Safety Report 7810868-4 (Version None)
Quarter: 2011Q4

REPORT INFORMATION
  Report Type: 
  Country: None (occurrence: None)
  Receive Date: 20111012
  Receipt Date: 20111012
  Transmission Date: 20120403
  Serious: Yes (Hospitalization)
  Sender: FDA-Public Use
  Company Number: None

PATIENT
  Sex: Male
  Weight: 110.45 kg

DRUGS (1)
  1. CISPLATIN [Suspect]
     Dosage: 171 MG
     Dates: end: 20090112

REACTIONS (7)
  - PNEUMONIA ASPIRATION [None]
  - HYPERNATRAEMIA [None]
  - RENAL FAILURE ACUTE [None]
  - FATIGUE [None]
  - METABOLIC ALKALOSIS [None]
  - DECREASED APPETITE [None]
  - DYSPHAGIA [None]
